FAERS Safety Report 9028904 (Version 1)
Quarter: 2013Q1

REPORT INFORMATION
  Report Type: Spontaneous
  Country: US (occurrence: US)
  Receive Date: 20130124
  Receipt Date: 20130124
  Transmission Date: 20140127
  Serious: No
  Sender: FDA-Public Use
  Company Number: US-BAUSCH-BL-2012-000127

PATIENT
  Sex: Female

DRUGS (1)
  1. ALAWAY [Suspect]
     Indication: EYE ALLERGY
     Dosage: 1-2 DROPS IN EACH EYE, ONCE DAILY
     Route: 047
     Dates: start: 201207, end: 201207

REACTIONS (2)
  - Eye irritation [Recovered/Resolved]
  - Drug ineffective [Recovered/Resolved]
